FAERS Safety Report 10276217 (Version 1)
Quarter: 2014Q3

REPORT INFORMATION
  Report Type: Spontaneous
  Country: GB (occurrence: GB)
  Receive Date: 20140703
  Receipt Date: 20140703
  Transmission Date: 20150326
  Serious: Yes (Other)
  Sender: FDA-Public Use
  Company Number: GB-SA-2014SA087868

PATIENT
  Age: 12 Year
  Sex: Male
  Weight: 63.5 kg

DRUGS (5)
  1. CALPOL [Concomitant]
     Active Substance: ACETAMINOPHEN
     Route: 065
     Dates: start: 20140509, end: 20140521
  2. CETIRIZINE [Concomitant]
     Active Substance: CETIRIZINE HYDROCHLORIDE
     Route: 065
     Dates: start: 20140401, end: 20140618
  3. PIRITON [Concomitant]
     Active Substance: CHLORPHENIRAMINE MALEATE
     Route: 065
     Dates: start: 20140617, end: 20140617
  4. FEXOFENADINE HYDROCHLORIDE. [Suspect]
     Active Substance: FEXOFENADINE HYDROCHLORIDE
     Indication: SEASONAL ALLERGY
     Dosage: ONE 30MG TABLET TWICE A DAY (REACTION AFTER FIRST DOSE SO ONLY ONE TABLET TAKEN).
     Route: 048
     Dates: start: 20140619, end: 20140619
  5. NUROFEN [Concomitant]
     Active Substance: IBUPROFEN
     Route: 065
     Dates: start: 20140510, end: 20140517

REACTIONS (3)
  - Pharyngeal oedema [Recovered/Resolved]
  - Tachycardia [Recovered/Resolved]
  - Dyspnoea [Recovered/Resolved]

NARRATIVE: CASE EVENT DATE: 20140619
